FAERS Safety Report 13400484 (Version 1)
Quarter: 2017Q2

REPORT INFORMATION
  Report Type: Spontaneous
  Country: US (occurrence: US)
  Receive Date: 20170404
  Receipt Date: 20170404
  Transmission Date: 20170830
  Serious: No
  Sender: FDA-Public Use
  Company Number: US-TEVA-753035ACC

PATIENT
  Sex: Female

DRUGS (1)
  1. PROAIR HFA [Suspect]
     Active Substance: ALBUTEROL SULFATE
     Dosage: DOSAGE: 90MCG, FREQUENCY: 2 PUFFS Q 6 HOURS
     Dates: start: 20160407

REACTIONS (1)
  - Drug ineffective [Unknown]
